FAERS Safety Report 21898640 (Version 1)
Quarter: 2023Q1

REPORT INFORMATION
  Report Type: Report from Study
  Country: FR (occurrence: FR)
  Receive Date: 20230123
  Receipt Date: 20230123
  Transmission Date: 20230417
  Serious: Yes (Other)
  Sender: FDA-Public Use
  Company Number: FR-SA-SAC20230118000664

PATIENT
  Age: 58 Year
  Sex: Female

DRUGS (8)
  1. ISATUXIMAB [Suspect]
     Active Substance: ISATUXIMAB
     Indication: Plasma cell myeloma
     Dosage: 555 MG
     Route: 065
     Dates: start: 20221228, end: 20221228
  2. ISATUXIMAB [Suspect]
     Active Substance: ISATUXIMAB
     Dosage: 555 MG
     Route: 065
     Dates: start: 20221221, end: 20221221
  3. POMALIDOMIDE [Suspect]
     Active Substance: POMALIDOMIDE
     Indication: Plasma cell myeloma
     Dosage: 3 MG
     Dates: start: 20230110, end: 20230110
  4. POMALIDOMIDE [Suspect]
     Active Substance: POMALIDOMIDE
     Dosage: 3 MG
     Dates: start: 20221228, end: 20221228
  5. CARFILZOMIB [Suspect]
     Active Substance: CARFILZOMIB
     Indication: Plasma cell myeloma
     Dosage: 43.7 MG
     Dates: start: 20230105, end: 20230105
  6. CARFILZOMIB [Suspect]
     Active Substance: CARFILZOMIB
     Dosage: 32.2 MG
     Dates: start: 20221212, end: 20221212
  7. DEXAMETHASONE [Concomitant]
     Active Substance: DEXAMETHASONE
     Indication: Plasma cell myeloma
     Dosage: 40 MG
     Dates: start: 20230111, end: 20230111
  8. DEXAMETHASONE [Concomitant]
     Active Substance: DEXAMETHASONE
     Dosage: 40 MG
     Dates: start: 20221221, end: 20221221

REACTIONS (1)
  - Neutropenia [Not Recovered/Not Resolved]

NARRATIVE: CASE EVENT DATE: 20230116
